FAERS Safety Report 5742046-7 (Version None)
Quarter: 2008Q2

REPORT INFORMATION
  Report Type: 
  Country: None (occurrence: None)
  Receive Date: 20080519
  Receipt Date: 20080507
  Transmission Date: 20081010
  Serious: Yes (Other)
  Sender: FDA-Public Use
  Company Number: ES-MERCK-0805ESP00008

PATIENT
  Sex: Male

DRUGS (5)
  1. CRIXIVAN [Suspect]
     Indication: HIV INFECTION
     Route: 048
     Dates: start: 19970101, end: 20000101
  2. LAMIVUDINE [Suspect]
     Indication: HIV INFECTION
     Route: 048
     Dates: start: 19970101, end: 20000101
  3. STAVUDINE [Suspect]
     Indication: HIV INFECTION
     Route: 048
     Dates: start: 19970101, end: 20000101
  4. DIDANOSINE [Suspect]
     Indication: HIV INFECTION
     Route: 065
     Dates: start: 20000101, end: 20020101
  5. DIDANOSINE [Suspect]
     Route: 065
     Dates: start: 20060101

REACTIONS (4)
  - CD4 LYMPHOCYTES DECREASED [None]
  - HYPERTENSION [None]
  - LIPODYSTROPHY ACQUIRED [None]
  - NEPHROPATHY [None]
